FAERS Safety Report 7397983-7 (Version None)
Quarter: 2011Q2

REPORT INFORMATION
  Report Type: 
  Country: None (occurrence: None)
  Receive Date: 20110406
  Receipt Date: 20110328
  Transmission Date: 20111010
  Serious: Yes (Other)
  Sender: FDA-Public Use
  Company Number: US-CEPHALON-2011000676

PATIENT
  Sex: Male
  Weight: 139 kg

DRUGS (3)
  1. MOBIC [Concomitant]
  2. NUVIGIL [Suspect]
     Indication: SLEEP APNOEA SYNDROME
     Route: 048
     Dates: start: 20110209, end: 20110209
  3. VITAMIN B-12 [Concomitant]

REACTIONS (4)
  - ADVERSE DRUG REACTION [None]
  - RASH ERYTHEMATOUS [None]
  - RASH MACULAR [None]
  - SKIN EXFOLIATION [None]
